FAERS Safety Report 9359416 (Version 1)
Quarter: 2013Q2

REPORT INFORMATION
  Report Type: Spontaneous
  Country: BE (occurrence: BE)
  Receive Date: 20130620
  Receipt Date: 20130620
  Transmission Date: 20140414
  Serious: Yes (Other)
  Sender: FDA-Public Use
  Company Number: BE-PFIZER INC-2013183304

PATIENT
  Age: 89 Year
  Sex: Male

DRUGS (1)
  1. NEURONTIN [Suspect]
     Indication: DIABETIC NEUROPATHY
     Dosage: UNK
     Route: 048

REACTIONS (1)
  - Fall [Unknown]
